FAERS Safety Report 9743175 (Version 1)
Quarter: 2013Q4

REPORT INFORMATION
  Report Type: Spontaneous
  Country: US (occurrence: US)
  Receive Date: 20131210
  Receipt Date: 20131210
  Transmission Date: 20140711
  Serious: No
  Sender: FDA-Public Use
  Company Number: US-GILEAD-2009-0024949

PATIENT
  Age: 64 Year
  Sex: Female

DRUGS (11)
  1. LETAIRIS [Suspect]
     Indication: COR PULMONALE CHRONIC
     Route: 048
     Dates: start: 20091014
  2. LETAIRIS [Suspect]
     Route: 048
     Dates: start: 20090306, end: 20091013
  3. REVATIO [Concomitant]
  4. AZOR [Concomitant]
  5. HCTZ [Concomitant]
  6. PLAVIX [Concomitant]
  7. ASA [Concomitant]
  8. NABUMETONE [Concomitant]
  9. TRAMADOL [Concomitant]
  10. LORAZEPAM [Concomitant]
  11. PREVACID [Concomitant]

REACTIONS (2)
  - Fatigue [Unknown]
  - Headache [Not Recovered/Not Resolved]
